FAERS Safety Report 15996324 (Version 7)
Quarter: 2019Q3

REPORT INFORMATION
  Report Type: Report from Study
  Country: US (occurrence: US)
  Receive Date: 20190222
  Receipt Date: 20190923
  Transmission Date: 20191004
  Serious: Yes (Hospitalization)
  Sender: FDA-Public Use
  Company Number: US-ACTELION-A-US2019-186554

PATIENT
  Age: 64 Year
  Sex: Female
  Weight: 72.56 kg

DRUGS (15)
  1. VELETRI [Suspect]
     Active Substance: EPOPROSTENOL
     Dosage: 28 NG/KG, PER MIN
     Route: 042
  2. VELETRI [Suspect]
     Active Substance: EPOPROSTENOL
     Dosage: 79 NG/KG, PER MIN
     Route: 042
  3. OXYGEN. [Concomitant]
     Active Substance: OXYGEN
     Dosage: 4 UNK
  4. LEVOTHYROXINE. [Concomitant]
     Active Substance: LEVOTHYROXINE
     Dosage: UNK MG, QD
  5. VELETRI [Suspect]
     Active Substance: EPOPROSTENOL
     Indication: PULMONARY ARTERIAL HYPERTENSION
     Dosage: 34 NG/KG, PER MIN
     Route: 042
     Dates: start: 20161129
  6. SILDENAFIL CITRATE. [Concomitant]
     Active Substance: SILDENAFIL CITRATE
  7. FLUTICASONE. [Concomitant]
     Active Substance: FLUTICASONE
     Dosage: 2 PUFFS, BID
  8. POTASSIUM CHLORIDE. [Concomitant]
     Active Substance: POTASSIUM CHLORIDE
     Dosage: 20 MEQ, TID
  9. MAGNESIUM OXIDE. [Concomitant]
     Active Substance: MAGNESIUM OXIDE
     Dosage: 400 MG, TID
  10. LETAIRIS [Concomitant]
     Active Substance: AMBRISENTAN
  11. SPIRONOLACTONE. [Concomitant]
     Active Substance: SPIRONOLACTONE
     Dosage: 25 MG, BID
  12. OXYGEN. [Concomitant]
     Active Substance: OXYGEN
     Dosage: 3 L, PER MIN
  13. ZOLOFT [Concomitant]
     Active Substance: SERTRALINE HYDROCHLORIDE
     Dosage: 5 MG, QD
  14. LASIX [Concomitant]
     Active Substance: FUROSEMIDE
     Dosage: UNK
  15. GABAPENTIN. [Concomitant]
     Active Substance: GABAPENTIN
     Dosage: 300 MG, TID

REACTIONS (20)
  - Unresponsive to stimuli [Unknown]
  - Heart rate increased [Unknown]
  - Fall [Unknown]
  - Hypoxia [Unknown]
  - Traumatic intracranial haemorrhage [Unknown]
  - Head injury [Unknown]
  - Cardioversion [Unknown]
  - Pneumonia [Recovering/Resolving]
  - Syncope [Unknown]
  - Injury [Unknown]
  - Hypophagia [Unknown]
  - Diarrhoea [Unknown]
  - Pain in jaw [Unknown]
  - Oxygen saturation decreased [Recovering/Resolving]
  - Weight decreased [Unknown]
  - Unevaluable event [Unknown]
  - Productive cough [Recovering/Resolving]
  - Cardiac flutter [Unknown]
  - Oedema [Unknown]
  - Hospitalisation [Unknown]

NARRATIVE: CASE EVENT DATE: 20190210
